FAERS Safety Report 6259342-X (Version None)
Quarter: 2009Q3

REPORT INFORMATION
  Report Type: 
  Country: None (occurrence: None)
  Receive Date: 20090706
  Receipt Date: 20090623
  Transmission Date: 20100115
  Serious: Yes (Hospitalization, Disabling)
  Sender: FDA-Public Use
  Company Number: 09-001016

PATIENT
  Age: 55 Year
  Sex: Female

DRUGS (11)
  1. FEMHRT [Suspect]
     Dosage: ,% QD, ORAL
     Route: 048
  2. PREMARIN [Suspect]
     Indication: PRURITUS
     Dosage: 42.5 G, QD, VAGINAL
     Route: 067
     Dates: start: 20081117, end: 20081123
  3. LEXAPRO [Concomitant]
  4. BUSPAR [Concomitant]
  5. LISINOPRIL [Concomitant]
  6. HYDROCHLOROTHIAZIDE (HYDROCODONE BITARTRATE, PARACETAMOL) [Concomitant]
  7. ZOCOR [Concomitant]
  8. LORTAB [Concomitant]
  9. ATARAX [Concomitant]
  10. CLOTRIMAZOLE [Concomitant]
  11. ZITHROMAX [Concomitant]

REACTIONS (3)
  - CONDITION AGGRAVATED [None]
  - VULVAL CANCER [None]
  - VULVOVAGINAL MYCOTIC INFECTION [None]
